FAERS Safety Report 7264647-X (Version None)
Quarter: 2011Q1

REPORT INFORMATION
  Report Type: 
  Country: None (occurrence: None)
  Receive Date: 20110119
  Receipt Date: 20110104
  Transmission Date: 20110831
  Serious: Yes (Hospitalization)
  Sender: FDA-Public Use
  Company Number: 015867

PATIENT
  Sex: Female

DRUGS (1)
  1. VERAPAMIL HCL (PM), 300 MG (VERAPAMIL HYDROCHLORIDE) EXTENDED-RELEASE [Suspect]
     Dosage: 300 MG,

REACTIONS (3)
  - DRUG INEFFECTIVE [None]
  - PRODUCT SUBSTITUTION ISSUE [None]
  - MYOCARDIAL INFARCTION [None]
